FAERS Safety Report 9969649 (Version 3)
Quarter: 2014Q1

REPORT INFORMATION
  Report Type: Report from Study
  Country: CA (occurrence: CA)
  Receive Date: 20140306
  Receipt Date: 20140310
  Transmission Date: 20141002
  Serious: Yes (Other)
  Sender: FDA-Public Use
  Company Number: CA-ROCHE-1152643

PATIENT
  Age: 57 Year
  Sex: Female
  Weight: 58.1 kg

DRUGS (8)
  1. ACTEMRA [Suspect]
     Indication: RHEUMATOID ARTHRITIS
     Route: 042
     Dates: start: 20120726, end: 20121017
  2. ACTEMRA [Suspect]
     Route: 042
     Dates: start: 20121017, end: 20121017
  3. RITUXAN [Suspect]
     Indication: RHEUMATOID ARTHRITIS
     Dosage: DAY 1 AND 15
     Route: 042
     Dates: start: 20140113
  4. SOLU-MEDROL [Suspect]
     Indication: PREMEDICATION
     Route: 042
     Dates: start: 20140113, end: 20140210
  5. ADVIL LIQUI-GELS [Concomitant]
  6. NAPROXEN [Concomitant]
  7. VITAMIN C [Concomitant]
  8. ACETAMINOPHEN [Concomitant]
     Route: 048
     Dates: start: 20140113

REACTIONS (3)
  - Drug ineffective [Unknown]
  - Herpes zoster [Recovering/Resolving]
  - Infusion related reaction [Unknown]
